FAERS Safety Report 6938493-8 (Version None)
Quarter: 2010Q3

REPORT INFORMATION
  Report Type: 
  Country: None (occurrence: None)
  Receive Date: 20100824
  Receipt Date: 20100810
  Transmission Date: 20110219
  Serious: Yes (Hospitalization)
  Sender: FDA-Public Use
  Company Number: ZA-ELI_LILLY_AND_COMPANY-ZA201006006420

PATIENT
  Age: 10 Year
  Sex: Female

DRUGS (2)
  1. STRATTERA [Suspect]
     Indication: ATTENTION DEFICIT/HYPERACTIVITY DISORDER
     Route: 048
  2. STRATTERA [Suspect]
     Dosage: 50 MG, UNK
     Route: 048

REACTIONS (3)
  - FEELING JITTERY [None]
  - INTENTIONAL DRUG MISUSE [None]
  - MUSCLE CONTRACTIONS INVOLUNTARY [None]
